FAERS Safety Report 7292939-7 (Version None)
Quarter: 2011Q1

REPORT INFORMATION
  Report Type: 
  Country: None (occurrence: None)
  Receive Date: 20110209
  Receipt Date: 20110209
  Transmission Date: 20110831
  Serious: Yes (Other)
  Sender: FDA-Public Use
  Company Number: None

PATIENT
  Age: 8 Year
  Sex: Male
  Weight: 27.2158 kg

DRUGS (1)
  1. INTUNIV [Suspect]
     Indication: ATTENTION DEFICIT/HYPERACTIVITY DISORDER
     Dosage: 1 MG 1X DAILY PO
     Route: 048
     Dates: start: 20110205, end: 20110206

REACTIONS (4)
  - IRRITABILITY [None]
  - FATIGUE [None]
  - CRYING [None]
  - IMPATIENCE [None]
